FAERS Safety Report 9483698 (Version 4)
Quarter: 2013Q4

REPORT INFORMATION
  Report Type: Report from Study
  Country: US (occurrence: US)
  Receive Date: 20130828
  Receipt Date: 20131105
  Transmission Date: 20140711
  Serious: Yes (Hospitalization)
  Sender: FDA-Public Use
  Company Number: US-JNJFOC-20130813776

PATIENT
  Age: 13 Year
  Sex: Male
  Weight: 46 kg

DRUGS (4)
  1. REMICADE [Suspect]
     Indication: COLITIS ULCERATIVE
     Dosage: DRUG START DATE REPORTED AS 29-JUL-2013
     Route: 042
     Dates: start: 2013
  2. METHOTREXATE [Concomitant]
     Route: 048
     Dates: start: 20130727
  3. METHOTREXATE [Concomitant]
     Route: 048
  4. PREDNISONE [Concomitant]
     Route: 065

REACTIONS (1)
  - Colitis ulcerative [Recovered/Resolved]
